FAERS Safety Report 6471476-3 (Version None)
Quarter: 2009Q4

REPORT INFORMATION
  Report Type: 
  Country: None (occurrence: None)
  Receive Date: 20091203
  Receipt Date: 20080305
  Transmission Date: 20100525
  Serious: Yes (Hospitalization)
  Sender: FDA-Public Use
  Company Number: US-ELI_LILLY_AND_COMPANY-US200802006595

PATIENT
  Age: 79 Year
  Sex: Male
  Weight: 75.737 kg

DRUGS (7)
  1. FORTEO [Suspect]
     Indication: OSTEOPOROSIS
     Dosage: UNK, UNK
     Dates: start: 20020701, end: 20040701
  2. IBUPROFEN [Concomitant]
  3. FOSAMAX [Concomitant]
  4. NEXIUM [Concomitant]
  5. TRIAMTERENE [Concomitant]
  6. CLARINEX [Concomitant]
  7. ATENOLOL [Concomitant]

REACTIONS (1)
  - COMPRESSION FRACTURE [None]
